FAERS Safety Report 4360357-7 (Version None)
Quarter: 2004Q2

REPORT INFORMATION
  Report Type: 
  Country: None (occurrence: None)
  Receive Date: 20040519
  Receipt Date: 20040511
  Transmission Date: 20050107
  Serious: Yes (Other)
  Sender: FDA-Public Use
  Company Number: US-BRISTOL-MYERS SQUIBB COMPANY-12585394

PATIENT
  Age: 14 Year
  Sex: Female
  Weight: 59 kg

DRUGS (6)
  1. CYTOXAN [Suspect]
     Indication: NEPHROTIC SYNDROME
     Dosage: REDUCED TO 50 MG ONCE DAILY IN MAR OR APR-2004
     Dates: start: 20040115
  2. PREDNISONE [Concomitant]
  3. RANITIDINE [Concomitant]
  4. PROZAC [Concomitant]
  5. TRILEPTAL [Concomitant]
     Dosage: 150 MG IN AM; 900 MG IN PM
  6. AMBIEN [Concomitant]

REACTIONS (1)
  - NEUROPATHY PERIPHERAL [None]
